FAERS Safety Report 10006677 (Version 1)
Quarter: 2014Q1

REPORT INFORMATION
  Report Type: Spontaneous
  Country: US (occurrence: US)
  Receive Date: 20140313
  Receipt Date: 20140313
  Transmission Date: 20141002
  Serious: No
  Sender: FDA-Public Use
  Company Number: US-PFIZER INC-2014068440

PATIENT
  Age: 73 Year
  Sex: Female
  Weight: 49.89 kg

DRUGS (1)
  1. ADVIL [Suspect]
     Indication: PAIN
     Dosage: 200 MG, EVERY OTHER NIGHT
     Route: 048
     Dates: start: 2013

REACTIONS (2)
  - Dysgeusia [Unknown]
  - Product taste abnormal [Unknown]
